FAERS Safety Report 9757949 (Version 3)
Quarter: 2014Q1

REPORT INFORMATION
  Report Type: Report from Study
  Country: IT (occurrence: IT)
  Receive Date: 20131216
  Receipt Date: 20140108
  Transmission Date: 20141002
  Serious: Yes (Hospitalization)
  Sender: FDA-Public Use
  Company Number: IT-CELGENEUS-083-50794-13112650

PATIENT
  Age: 77 Year
  Sex: Male

DRUGS (10)
  1. VIDAZA [Suspect]
     Indication: MYELODYSPLASTIC SYNDROME
     Dosage: 132.75 MILLIGRAM
     Route: 065
     Dates: start: 20131104, end: 20131108
  2. REVLIMID [Suspect]
     Indication: MYELODYSPLASTIC SYNDROME
     Dosage: 10 MILLIGRAM
     Route: 048
     Dates: start: 20131104, end: 20131112
  3. CARDIO ASPIRIN [Concomitant]
     Indication: ANTICOAGULANT THERAPY
     Route: 065
     Dates: start: 2012
  4. CARDIO ASPIRIN [Concomitant]
     Indication: THROMBOSIS PROPHYLAXIS
     Route: 065
  5. CARDIO ASPIRIN [Concomitant]
     Indication: CARDIAC DISORDER
  6. TRIATEC [Concomitant]
     Indication: HYPERTENSION
     Dosage: 2.5 MILLIGRAM
     Route: 065
     Dates: start: 2012
  7. CONGESCOR [Concomitant]
     Indication: HYPERTENSION
     Dosage: 5 MILLIGRAM
     Route: 065
     Dates: start: 2012
  8. LANSOPRAZOL [Concomitant]
     Indication: PROPHYLAXIS
     Dosage: 30 MILLIGRAM
     Route: 065
     Dates: start: 2012
  9. KANRENOL [Concomitant]
     Indication: CARDIAC DISORDER
     Route: 065
  10. NITRODERM [Concomitant]
     Indication: CARDIAC DISORDER
     Dosage: 5 MILLIGRAM
     Route: 065

REACTIONS (3)
  - Pulmonary oedema [Recovered/Resolved]
  - Gouty arthritis [Recovered/Resolved]
  - Subarachnoid haemorrhage [Recovered/Resolved]
